FAERS Safety Report 12317228 (Version 1)
Quarter: 2016Q2

REPORT INFORMATION
  Report Type: Spontaneous
  Country: CN (occurrence: CN)
  Receive Date: 20160429
  Receipt Date: 20160429
  Transmission Date: 20160815
  Serious: Yes (Other)
  Sender: FDA-Public Use
  Company Number: CN-BAYER-2016-077583

PATIENT
  Age: 78 Year
  Sex: Female

DRUGS (2)
  1. GLUCOBAY [Suspect]
     Active Substance: ACARBOSE
     Indication: DIABETES MELLITUS
     Dosage: UNK UNK, TID
  2. GLUCOBAY [Suspect]
     Active Substance: ACARBOSE
     Indication: DIABETES MELLITUS
     Dosage: UNK UNK, BID
     Dates: start: 2006

REACTIONS (7)
  - Cataract [None]
  - Drug ineffective [None]
  - Blood glucose increased [None]
  - Macular degeneration [None]
  - Hypoaesthesia [None]
  - Vision blurred [None]
  - Hyperlipidaemia [None]
